FAERS Safety Report 15334057 (Version 1)
Quarter: 2018Q3

REPORT INFORMATION
  Report Type: Report from Study
  Country: None (occurrence: DE)
  Receive Date: 20180830
  Receipt Date: 20180830
  Transmission Date: 20181010
  Serious: Yes (Death)
  Sender: FDA-Public Use
  Company Number: DE-BAUSCH-BL-2018-024176

PATIENT
  Age: 9 Year

DRUGS (2)
  1. DEXAMETHASONE. [Suspect]
     Active Substance: DEXAMETHASONE
     Indication: NON-HODGKIN^S LYMPHOMA
     Dosage: 10 MG/M2/DAY FOR 8?28 DAYS
     Route: 065
  2. DEXAMETHASONE. [Suspect]
     Active Substance: DEXAMETHASONE
     Dosage: TAPERED OVER 3X3 DAYS FOR
     Route: 065

REACTIONS (4)
  - Acute pulmonary oedema [Fatal]
  - Acute respiratory failure [Fatal]
  - Coma [Fatal]
  - Cardiac arrest [Fatal]
